FAERS Safety Report 6684872-6 (Version None)
Quarter: 2010Q2

REPORT INFORMATION
  Report Type: 
  Country: None (occurrence: None)
  Receive Date: 20100416
  Receipt Date: 20100408
  Transmission Date: 20101027
  Serious: Yes (Hospitalization)
  Sender: FDA-Public Use
  Company Number: JP-MERCK-1003USA02012

PATIENT
  Age: 82 Year
  Sex: Female
  Weight: 42 kg

DRUGS (3)
  1. HYZAAR [Suspect]
     Indication: HYPERTENSION
     Route: 048
     Dates: end: 20090120
  2. SHAKUYAKU-KANZO-TO [Suspect]
     Indication: BACK PAIN
     Route: 048
     Dates: start: 20080101, end: 20090120
  3. NORVASC [Concomitant]
     Indication: HYPERTENSION
     Route: 048

REACTIONS (5)
  - ASTHENIA [None]
  - BLOOD CREATINE PHOSPHOKINASE INCREASED [None]
  - HYPOKALAEMIA [None]
  - METABOLIC ALKALOSIS [None]
  - PSEUDOALDOSTERONISM [None]
